FAERS Safety Report 23511122 (Version 1)
Quarter: 2024Q1

REPORT INFORMATION
  Report Type: Spontaneous
  Country: BR (occurrence: BR)
  Receive Date: 20240212
  Receipt Date: 20240212
  Transmission Date: 20240409
  Serious: Yes (Other)
  Sender: FDA-Public Use
  Company Number: BR-CHEPLA-2024001636

PATIENT
  Sex: Female
  Weight: 68 kg

DRUGS (2)
  1. CLONAZEPAM [Suspect]
     Active Substance: CLONAZEPAM
     Indication: Migraine
     Dosage: FREQ: 2 TIMES A DAY (1.5 TABLETS IN THE MORNING AND 1.5 IN THE EVENING). ?START DATE: MORE THAN ...
     Route: 048
  2. CLONAZEPAM [Suspect]
     Active Substance: CLONAZEPAM
     Indication: Migraine
     Dosage: START DATE: MORE THAN 30 YEARS AGO?STOP DATE:  MORE THAN 10 YEARS AGO???DAILY DOSE: 1 DOSAGE FORM
     Route: 048

REACTIONS (5)
  - Glaucoma [Not Recovered/Not Resolved]
  - Product use in unapproved indication [Not Recovered/Not Resolved]
  - Glucose tolerance impaired [Not Recovered/Not Resolved]
  - Hypertension [Recovered/Resolved]
  - Incorrect product administration duration [Unknown]

NARRATIVE: CASE EVENT DATE: 20120101
